FAERS Safety Report 16656687 (Version 1)
Quarter: 2019Q3

REPORT INFORMATION
  Report Type: Spontaneous
  Country: ES (occurrence: ES)
  Receive Date: 20190801
  Receipt Date: 20190801
  Transmission Date: 20191004
  Serious: Yes (Other)
  Sender: FDA-Public Use
  Company Number: ES-PFIZER INC-2019323453

PATIENT
  Age: 34 Year
  Sex: Male

DRUGS (4)
  1. TRILEPTAL [Concomitant]
     Active Substance: OXCARBAZEPINE
     Dosage: 150 MG, DAILY
     Route: 048
  2. OMEPRAZOLE. [Concomitant]
     Active Substance: OMEPRAZOLE
     Dosage: 20 MG, DAILY
     Route: 048
  3. NOCTAMID [Concomitant]
     Active Substance: LORMETAZEPAM
     Dosage: 1 MG, DAILY
     Route: 048
  4. KETAMINE HCL [Suspect]
     Active Substance: KETAMINE HYDROCHLORIDE
     Dosage: UNK
     Dates: start: 2018

REACTIONS (4)
  - Urethral pain [Recovered/Resolved]
  - Drug abuse [Unknown]
  - Pollakiuria [Recovered/Resolved]
  - Dysuria [Recovered/Resolved]

NARRATIVE: CASE EVENT DATE: 2018
